FAERS Safety Report 12529730 (Version 1)
Quarter: 2016Q3

REPORT INFORMATION
  Report Type: Spontaneous
  Country: US (occurrence: US)
  Receive Date: 20160706
  Receipt Date: 20160706
  Transmission Date: 20161109
  Serious: Yes (Death, Hospitalization, Other)
  Sender: FDA-Public Use
  Company Number: US-ZYDUS-011492

PATIENT
  Age: 57 Year
  Sex: Female

DRUGS (3)
  1. WARFARIN [Suspect]
     Active Substance: WARFARIN
     Indication: INTERNATIONAL NORMALISED RATIO FLUCTUATION
     Route: 065
  2. WARFARIN [Suspect]
     Active Substance: WARFARIN
     Indication: INTERNATIONAL NORMALISED RATIO FLUCTUATION
     Route: 065
  3. PHYTOMENADIONE [Concomitant]
     Active Substance: PHYTONADIONE
     Indication: INTERNATIONAL NORMALISED RATIO FLUCTUATION
     Route: 065

REACTIONS (7)
  - Blister [Recovering/Resolving]
  - Condition aggravated [Recovering/Resolving]
  - Sepsis [Fatal]
  - Calciphylaxis [Recovering/Resolving]
  - Stenotrophomonas test positive [Recovering/Resolving]
  - Pain [Recovering/Resolving]
  - Necrosis [Recovering/Resolving]
